FAERS Safety Report 9528346 (Version 1)
Quarter: 2013Q1

REPORT INFORMATION
  Report Type: Spontaneous
  Country: US (occurrence: None)
  Receive Date: 20130314
  Receipt Date: 20130314
  Transmission Date: 20140127
  Serious: Yes (Other)
  Sender: FDA-Public Use
  Company Number: 1211USA007233

PATIENT
  Sex: 0

DRUGS (3)
  1. REBETOL [Suspect]
  2. VICTRELIS [Suspect]
     Dates: start: 20121015
  3. INTERFERON ALFA [Suspect]

REACTIONS (1)
  - Drug ineffective [None]
